FAERS Safety Report 8115328-1 (Version None)
Quarter: 2012Q1

REPORT INFORMATION
  Report Type: 
  Country: None (occurrence: None)
  Receive Date: 20120206
  Receipt Date: 20120206
  Transmission Date: 20120608
  Serious: Yes (Hospitalization)
  Sender: FDA-Public Use
  Company Number: None

PATIENT
  Age: 67 Year
  Sex: Male
  Weight: 63.049 kg

DRUGS (3)
  1. PRADAXA [Suspect]
     Indication: ATRIAL FLUTTER
     Dosage: 150 MG
     Route: 048
     Dates: start: 20120124, end: 20120130
  2. PRADAXA [Suspect]
     Indication: ATRIAL FIBRILLATION
     Dosage: 150 MG
     Route: 048
     Dates: start: 20120124, end: 20120130
  3. PRADAXA [Suspect]
     Indication: SUPRAVENTRICULAR TACHYCARDIA
     Dosage: 150 MG
     Route: 048
     Dates: start: 20120124, end: 20120130

REACTIONS (2)
  - HAEMORRHAGE [None]
  - HAEMOGLOBIN DECREASED [None]
